FAERS Safety Report 18779053 (Version 2)
Quarter: 2021Q1

REPORT INFORMATION
  Report Type: Spontaneous
  Country: FR (occurrence: FR)
  Receive Date: 20210125
  Receipt Date: 20210209
  Transmission Date: 20210419
  Serious: Yes (Other)
  Sender: FDA-Public Use
  Company Number: FR-SAMSUNG BIOEPIS-SB-2021-00968

PATIENT
  Age: 57 Year
  Sex: Female
  Weight: 50 kg

DRUGS (12)
  1. PACLITAXEL. [Suspect]
     Active Substance: PACLITAXEL
     Indication: BREAST CANCER METASTATIC
     Route: 041
     Dates: start: 20200309, end: 20200825
  2. PREDNISOLONE. [Suspect]
     Active Substance: PREDNISOLONE
     Indication: PROPHYLAXIS OF NAUSEA AND VOMITING
     Route: 048
  3. ACTISKENAN [Suspect]
     Active Substance: MORPHINE SULFATE
     Indication: PAIN
     Route: 048
  4. SKENAN [Suspect]
     Active Substance: MORPHINE SULFATE
     Indication: PAIN
     Dosage: ONE IN MORNING AND TWO AT NIGHT (PROLONGED?RELEASE MICROGRANULES IN HARD CAPSULES)
     Route: 048
  5. CETIRIZINE (DICHLORHYDRATE DE) [Suspect]
     Active Substance: CETIRIZINE HYDROCHLORIDE
     Indication: PROPHYLAXIS OF NAUSEA AND VOMITING
     Route: 048
  6. CAPECITABINE. [Suspect]
     Active Substance: CAPECITABINE
     Indication: BREAST CANCER METASTATIC
     Route: 065
  7. CIMETIDINE [Suspect]
     Active Substance: CIMETIDINE
     Indication: PROPHYLAXIS OF NAUSEA AND VOMITING
     Route: 048
  8. TOUJEO [Suspect]
     Active Substance: INSULIN GLARGINE
     Indication: INSULIN-REQUIRING TYPE 2 DIABETES MELLITUS
     Route: 058
  9. CAPECITABINE. [Suspect]
     Active Substance: CAPECITABINE
     Route: 048
     Dates: start: 2019, end: 20200908
  10. PERTUZUMAB. [Suspect]
     Active Substance: PERTUZUMAB
     Indication: BREAST CANCER METASTATIC
     Route: 041
     Dates: start: 20200302
  11. TRASTUZUMAB. [Suspect]
     Active Substance: TRASTUZUMAB
     Indication: BREAST CANCER METASTATIC
     Route: 041
     Dates: start: 20200302
  12. OMEPRAZOLE. [Suspect]
     Active Substance: OMEPRAZOLE
     Indication: GASTROOESOPHAGEAL REFLUX DISEASE
     Route: 048

REACTIONS (2)
  - Keratitis [Not Recovered/Not Resolved]
  - Visual acuity reduced [Not Recovered/Not Resolved]

NARRATIVE: CASE EVENT DATE: 202006
